FAERS Safety Report 9197279 (Version 1)
Quarter: 2013Q1

REPORT INFORMATION
  Report Type: Spontaneous
  Country: US (occurrence: None)
  Receive Date: 20120709
  Receipt Date: 20120709
  Transmission Date: 20140127
  Serious: No
  Sender: FDA-Public Use
  Company Number: 2012HGS-003585

PATIENT
  Age: 53 Year
  Sex: Female
  Weight: 108.86 kg

DRUGS (6)
  1. BENLYSTA [Suspect]
     Indication: SYSTEMIC LUPUS ERYTHEMATOSUS
     Dosage: 1 IN 14 D
     Route: 041
     Dates: start: 20120404
  2. MYCOPHENOLATE (MYCOPHENOLATE MOFENTIL) (MYCOPHENOLATE MOFETIL) [Concomitant]
  3. BACTRIM DS (BACTRIM) (SULFAMETHOXAZOLE, TRIMETHOPRIM) [Concomitant]
  4. HYDROXYCHLORQUINE (HYDROXYCHLOROQUINE) (HYDROXYCHLOROQUINE) [Concomitant]
  5. DOXEPIN (DOXEPIN) (DOXEPIN) [Concomitant]
  6. LEVOTHYROXINE (LEVOTHYROXINE) (LEVOTHYROXINE) [Concomitant]

REACTIONS (5)
  - Thinking abnormal [None]
  - Fatigue [None]
  - Somnolence [None]
  - Headache [None]
  - Vomiting [None]
